FAERS Safety Report 16305819 (Version 1)
Quarter: 2019Q2

REPORT INFORMATION
  Report Type: Spontaneous
  Country: US (occurrence: US)
  Receive Date: 20190513
  Receipt Date: 20190513
  Transmission Date: 20190711
  Serious: Yes (Other)
  Sender: FDA-Public Use
  Company Number: US-PFIZER INC-2019200286

PATIENT
  Age: 57 Year
  Sex: Female
  Weight: 95 kg

DRUGS (2)
  1. ESTRADIOL. [Suspect]
     Active Substance: ESTRADIOL
     Indication: HORMONE REPLACEMENT THERAPY
     Dosage: 0.5 MG, 1X/DAY
     Route: 048
     Dates: start: 201808, end: 20190507
  2. MEDROXYPROGESTERONE ACETATE. [Suspect]
     Active Substance: MEDROXYPROGESTERONE ACETATE
     Indication: HORMONE REPLACEMENT THERAPY
     Dosage: UNK, 1X/DAY (0.5MG; HALF A TABLET)
     Route: 048
     Dates: start: 201808, end: 20190507

REACTIONS (2)
  - Haemorrhage [Unknown]
  - Weight increased [Unknown]

NARRATIVE: CASE EVENT DATE: 201808
